FAERS Safety Report 20460902 (Version 4)
Quarter: 2022Q3

REPORT INFORMATION
  Report Type: Other
  Country: US (occurrence: None)
  Receive Date: 20220211
  Receipt Date: 20220802
  Transmission Date: 20221026
  Serious: Yes (Hospitalization, Other)
  Sender: FDA-Public Use
  Company Number: US-ROCHE-3019249

PATIENT
  Age: 67 Year
  Sex: Female

DRUGS (1)
  1. OCREVUS [Suspect]
     Active Substance: OCRELIZUMAB
     Indication: Primary progressive multiple sclerosis
     Dosage: THEN 600 MG ONCE EVERY 6 MONTHS?DOT: 06/SEP/2017
     Route: 042
     Dates: start: 201706

REACTIONS (3)
  - COVID-19 [Recovered/Resolved]
  - Optic neuropathy [Unknown]
  - Mobility decreased [Not Recovered/Not Resolved]

NARRATIVE: CASE EVENT DATE: 20220109
